FAERS Safety Report 16696906 (Version 1)
Quarter: 2019Q3

REPORT INFORMATION
  Report Type: Spontaneous
  Country: NL (occurrence: NL)
  Receive Date: 20190813
  Receipt Date: 20190813
  Transmission Date: 20191004
  Serious: Yes (Death)
  Sender: FDA-Public Use
  Company Number: NL-SA-2019SA219081

PATIENT
  Age: 17 Year
  Sex: Male
  Weight: 51 kg

DRUGS (12)
  1. PROGRAFT [Suspect]
     Active Substance: TACROLIMUS
     Indication: GRAFT VERSUS HOST DISEASE
     Dosage: 2X A DAY 5 MG
     Route: 048
     Dates: start: 20190420, end: 20190530
  2. PREGABALIN. [Suspect]
     Active Substance: PREGABALIN
     Indication: PAIN
     Dosage: 2X 25 MG PER DAY
     Route: 048
     Dates: start: 20190514, end: 20190531
  3. CIPROFLOXACIN HYDROCHLORIDE. [Suspect]
     Active Substance: CIPROFLOXACIN HYDROCHLORIDE
     Indication: DEVICE RELATED INFECTION
     Dosage: 3 TIMES A DAY 400 MG
     Dates: start: 20190521, end: 20190530
  4. PENTACARINAT [Suspect]
     Active Substance: PENTAMIDINE ISETHIONATE
     Indication: INFECTION PROPHYLAXIS
     Dosage: 1X 200 MG (4 MG / KG) PER MONTH
     Dates: start: 20190409, end: 20190530
  5. PREDNISOLON [PREDNISOLONE] [Concomitant]
     Active Substance: PREDNISOLONE
     Dosage: 3 TIMES A DAY 10 MG
  6. ONDANSETRON [Concomitant]
     Active Substance: ONDANSETRON
     Dosage: CONDITION AFTER 3 TIMES A DAY 6 MG
  7. RANITIDINE. [Suspect]
     Active Substance: RANITIDINE
     Indication: PROPHYLAXIS AGAINST GASTROINTESTINAL ULCER
     Dosage: 2X A DAY 150 MG
     Route: 048
     Dates: start: 20190520, end: 20190529
  8. LORAZEPAM. [Concomitant]
     Active Substance: LORAZEPAM
     Dosage: CONDITION AFTER 3 TIMES A DAY 0.5 MG
  9. MAGNESIUMSULFAAT [Concomitant]
     Dosage: 3 TIMES A DAY 1000 MG
  10. VALACICLOVIR [Concomitant]
     Active Substance: VALACYCLOVIR HYDROCHLORIDE
     Dosage: 2X 500 MG PER DAY
  11. FOSAPREPITANT [Concomitant]
     Active Substance: FOSAPREPITANT
     Dosage: 1X PER DAY 80 MG
  12. FYTOMENADION [Concomitant]
     Dosage: 1X 10 MG PER DAY

REACTIONS (1)
  - Pancreatitis acute [Fatal]

NARRATIVE: CASE EVENT DATE: 20190529
